FAERS Safety Report 8917734 (Version 1)
Quarter: 2012Q4

REPORT INFORMATION
  Report Type: 
  Country: US (occurrence: US)
  Receive Date: 20121120
  Receipt Date: 20121120
  Transmission Date: 20130627
  Serious: Yes (Other)
  Sender: FDA-Public Use
  Company Number: US-009507513-1211USA006955

PATIENT
  Age: 65 Year
  Sex: Female

DRUGS (6)
  1. JANUVIA [Suspect]
     Indication: BLOOD GLUCOSE
     Dosage: 100 mg, qd
     Route: 048
  2. JANUVIA [Suspect]
     Indication: HAEMOGLOBIN DECREASED
  3. BYSTOLIC [Concomitant]
  4. INSULIN [Concomitant]
  5. AMARYL [Concomitant]
  6. HYDROCHLOROTHIAZIDE [Concomitant]

REACTIONS (2)
  - Pancreatitis [Recovering/Resolving]
  - Abdominal pain [Unknown]
